FAERS Safety Report 9949341 (Version 2)
Quarter: 2014Q1

REPORT INFORMATION
  Report Type: Spontaneous
  Country: US (occurrence: None)
  Receive Date: 20140122
  Receipt Date: 20140304
  Transmission Date: 20141002
  Serious: Yes (Death)
  Sender: FDA-Public Use
  Company Number: AEGR000240

PATIENT
  Age: 73 Year
  Sex: Female
  Weight: 71.2 kg

DRUGS (11)
  1. JUXTAPID [Suspect]
     Indication: TYPE IIA HYPERLIPIDAEMIA
     Route: 048
     Dates: end: 2013
  2. DIOVAN (VALSARTAN) [Concomitant]
  3. SYNTHROID (LEVOTHYROXINE SODIUM) [Concomitant]
  4. CYMBALTA [Concomitant]
  5. NUVIGIL (ARMODAFINIL) [Concomitant]
  6. EFFEXOR XR (VENLAFAXINE HYDROCHLORIDE) (75 MILLIGRAM, CAPSULE) (VENLAFAXINE HYDROCHLORIDE) [Concomitant]
  7. FLEXERIL (CEFIXIME) [Concomitant]
  8. BUDESONIDE (BUDESONIDE) [Concomitant]
  9. IPRATROPIUM (IPRATROPIUM BROMIDE) [Concomitant]
  10. ALBUTEROL (SALBUTAMOL SULFATE) [Concomitant]
  11. SYMBICORT (BUDESONIDE, FORMOTEROL FUMARATE) [Concomitant]

REACTIONS (2)
  - Pollakiuria [None]
  - Back pain [None]
